FAERS Safety Report 9745544 (Version 2)
Quarter: 2014Q2

REPORT INFORMATION
  Report Type: Report from Study
  Country: US (occurrence: US)
  Receive Date: 20131211
  Receipt Date: 20140604
  Transmission Date: 20141212
  Serious: Yes (Hospitalization, Congenital Anomaly)
  Sender: FDA-Public Use
  Company Number: US-JNJFOC-20131205056

PATIENT
  Age: 0 Day
  Sex: Male
  Weight: 2.72 kg

DRUGS (7)
  1. RISPERDAL [Suspect]
     Indication: BIPOLAR DISORDER
     Route: 064
     Dates: start: 20100809
  2. LAMICTAL [Suspect]
     Indication: BIPOLAR DISORDER
     Route: 064
     Dates: start: 20100717
  3. ABILIFY [Suspect]
     Indication: BIPOLAR DISORDER
     Route: 064
     Dates: start: 20100717, end: 20100808
  4. CELEXA [Suspect]
     Indication: DEPRESSION
     Route: 064
     Dates: start: 20100717
  5. BUSPAR [Suspect]
     Indication: DEPRESSION
     Route: 064
     Dates: start: 20100717
  6. PRILOSEC [Suspect]
     Indication: GASTROOESOPHAGEAL REFLUX DISEASE
     Route: 064
     Dates: start: 20100717
  7. CLONAZEPAM [Suspect]
     Indication: PRODUCT USED FOR UNKNOWN INDICATION
     Route: 064
     Dates: start: 20101109

REACTIONS (2)
  - Drug withdrawal syndrome neonatal [Unknown]
  - Foetal exposure during pregnancy [Recovered/Resolved]
